FAERS Safety Report 16921406 (Version 4)
Quarter: 2020Q1

REPORT INFORMATION
  Report Type: Spontaneous
  Country: US (occurrence: US)
  Receive Date: 20191015
  Receipt Date: 20200331
  Transmission Date: 20200409
  Serious: No
  Sender: FDA-Public Use
  Company Number: US-009507513-1909USA008728

PATIENT
  Age: 33 Year
  Sex: Female
  Weight: 97.52 kg

DRUGS (6)
  1. FLUCONAZOLE. [Concomitant]
     Active Substance: FLUCONAZOLE
  2. METROGEL (METRONIDAZOLE) [Concomitant]
  3. NEXPLANON [Suspect]
     Active Substance: ETONOGESTREL
     Indication: CONTRACEPTION
     Dosage: 1 IMPLANT, EVERY 3 YEARS RIGHT ARM
     Route: 059
     Dates: start: 20170303
  4. ACYCLOVIR. [Concomitant]
     Active Substance: ACYCLOVIR
  5. METRONIDAZOLE. [Concomitant]
     Active Substance: METRONIDAZOLE
  6. MEDROXYPROGESTERONE ACETATE. [Concomitant]
     Active Substance: MEDROXYPROGESTERONE ACETATE

REACTIONS (7)
  - Complication associated with device [Recovered/Resolved]
  - Incorrect product administration duration [Unknown]
  - Abdominal distension [Recovering/Resolving]
  - Vaginal haemorrhage [Recovering/Resolving]
  - Complication associated with device [Not Recovered/Not Resolved]
  - Complication of device removal [Not Recovered/Not Resolved]
  - Device deployment issue [Not Recovered/Not Resolved]

NARRATIVE: CASE EVENT DATE: 20170303
